FAERS Safety Report 4269681-X (Version None)
Quarter: 2004Q1

REPORT INFORMATION
  Report Type: 
  Country: None (occurrence: None)
  Receive Date: 20040112
  Receipt Date: 20031231
  Transmission Date: 20041129
  Serious: Yes (Death, Life-Threatening, Hospitalization)
  Sender: FDA-Public Use
  Company Number: GLIP20030005

PATIENT
  Age: 78 Year
  Sex: Male

DRUGS (10)
  1. GLIPIZIDE [Suspect]
     Dosage: PO
     Route: 048
     Dates: start: 20020101, end: 20020101
  2. METFORMIN HCL [Suspect]
     Dosage: PO
     Route: 048
     Dates: start: 20020101, end: 20020101
  3. ACARBOSE [Suspect]
     Dosage: PO
     Route: 048
     Dates: start: 20020101, end: 20020101
  4. TERAZOSIN HCL [Suspect]
     Dosage: PO
     Route: 048
     Dates: start: 20020101, end: 20020101
  5. LISINOPRIL [Suspect]
     Dosage: PO
     Route: 048
     Dates: start: 20020101, end: 20020101
  6. GABAPENTIN [Suspect]
     Dosage: PO
     Route: 048
     Dates: start: 20020101, end: 20020101
  7. HYDROXYZINE [Suspect]
     Dosage: PO
     Route: 048
     Dates: start: 20020101, end: 20020101
  8. DIPYRIDAMOLE [Suspect]
     Dosage: PO
     Route: 048
     Dates: start: 20020101, end: 20020101
  9. LOVASTATIN [Suspect]
     Dosage: PO
     Route: 048
     Dates: start: 20020101, end: 20020101
  10. FINASTERIDE [Suspect]
     Dosage: PO
     Route: 048
     Dates: start: 20020101, end: 20020101

REACTIONS (10)
  - ACIDOSIS [None]
  - BRADYCARDIA [None]
  - COMPLETED SUICIDE [None]
  - DIARRHOEA [None]
  - HYPOGLYCAEMIA [None]
  - HYPOTENSION [None]
  - HYPOTHERMIA [None]
  - LACTIC ACIDOSIS [None]
  - LETHARGY [None]
  - OVERDOSE [None]
